FAERS Safety Report 5373001-7 (Version None)
Quarter: 2007Q2

REPORT INFORMATION
  Report Type: 
  Country: None (occurrence: None)
  Receive Date: 20070619
  Receipt Date: 20070409
  Transmission Date: 20071010
  Serious: No
  Sender: FDA-Public Use
  Company Number: 2007US000645

PATIENT
  Age: 84 Year
  Sex: Female

DRUGS (7)
  1. VESICARE [Suspect]
     Indication: HYPERTONIC BLADDER
     Dosage: 5 MG, UID/QD, ORAL  10 MG, UID/QD, ORAL
     Route: 048
     Dates: start: 20070306, end: 20070308
  2. VESICARE [Suspect]
     Indication: HYPERTONIC BLADDER
     Dosage: 5 MG, UID/QD, ORAL  10 MG, UID/QD, ORAL
     Route: 048
     Dates: start: 20060101
  3. CELEBREX [Concomitant]
  4. HYDRALAZINE HCL [Concomitant]
  5. HYDROCHLOROTHIAZIDE [Concomitant]
  6. ATENOLOL [Concomitant]
  7. ADVIL(PSEUDOEPHEDRINE HYDROCHLORIDE) [Concomitant]

REACTIONS (7)
  - ARTHRITIS [None]
  - CONSTIPATION [None]
  - DECREASED APPETITE [None]
  - DRUG INEFFECTIVE [None]
  - HEADACHE [None]
  - NAUSEA [None]
  - WEIGHT DECREASED [None]
